FAERS Safety Report 9858361 (Version 1)
Quarter: 2014Q1

REPORT INFORMATION
  Report Type: Spontaneous
  Country: US (occurrence: None)
  Receive Date: 20140129
  Receipt Date: 20140129
  Transmission Date: 20141002
  Serious: Yes (Other)
  Sender: FDA-Public Use
  Company Number: GB-DEXPHARM-20140013

PATIENT
  Age: 22 Year
  Sex: Male

DRUGS (2)
  1. OMEPRAZOLE [Suspect]
     Indication: GASTRITIS
     Dosage: 20 MG MILLIGRAM(S), 2 IN 1 DAYS
     Dates: end: 20131108
  2. AZATHIOPRINE [Concomitant]

REACTIONS (1)
  - Migraine [None]
